FAERS Safety Report 5243953-4 (Version None)
Quarter: 2007Q1

REPORT INFORMATION
  Report Type: 
  Country: None (occurrence: None)
  Receive Date: 20070222
  Receipt Date: 20070220
  Transmission Date: 20070707
  Serious: Yes (Hospitalization)
  Sender: FDA-Public Use
  Company Number: DK-AVENTIS-200710826EU

PATIENT
  Age: 73 Year
  Sex: Male

DRUGS (9)
  1. ENOXAPARIN SODIUM [Suspect]
     Route: 058
     Dates: start: 20070121, end: 20070131
  2. MORFIN [Suspect]
     Indication: PAIN MANAGEMENT
     Dates: start: 20070122, end: 20070125
  3. MINIDIAB [Concomitant]
     Indication: DIABETES MELLITUS
     Dates: start: 20000101
  4. ODRIK [Concomitant]
     Dates: start: 20061001
  5. BRUFEN [Concomitant]
     Indication: PAIN MANAGEMENT
     Dates: start: 20060101
  6. PARACETAMOL [Concomitant]
     Indication: PAIN MANAGEMENT
     Dates: start: 20070122
  7. MAGNESIA                           /00552801/ [Concomitant]
     Dates: start: 20070122
  8. TOILAX [Concomitant]
     Dates: start: 20070122
  9. TRADOLAN [Concomitant]
     Indication: PAIN MANAGEMENT
     Dates: start: 20070122

REACTIONS (2)
  - CONFUSIONAL STATE [None]
  - WOUND SECRETION [None]
